FAERS Safety Report 9950430 (Version 1)
Quarter: 2014Q1

REPORT INFORMATION
  Report Type: Report from Study
  Country: US (occurrence: US)
  Receive Date: 20140304
  Receipt Date: 20140304
  Transmission Date: 20141002
  Serious: No
  Sender: FDA-Public Use
  Company Number: US-ABBVIE-13P-163-1070554-00

PATIENT
  Age: 48 Year
  Sex: Female

DRUGS (31)
  1. HUMIRA [Suspect]
     Indication: PSORIASIS
     Dates: start: 20121121, end: 201301
  2. HUMIRA [Suspect]
     Dates: start: 20130213
  3. CYMBALTA [Concomitant]
     Indication: ANXIETY
  4. CYMBALTA [Concomitant]
     Indication: DEPRESSION
  5. BUSPAR [Concomitant]
     Indication: ANXIETY
  6. BUSPAR [Concomitant]
     Indication: DEPRESSION
  7. GABAPENTIN [Concomitant]
     Indication: ANXIETY
  8. GABAPENTIN [Concomitant]
     Indication: DEPRESSION
  9. CLONAZEPAM [Concomitant]
     Indication: ANXIETY
  10. CLONAZEPAM [Concomitant]
     Indication: DEPRESSION
  11. SYNTHROID [Concomitant]
     Indication: HYPOTHYROIDISM
  12. METFORMIN ER [Concomitant]
     Indication: DIABETES MELLITUS
  13. JANUVIA [Concomitant]
     Indication: DIABETES MELLITUS
  14. ZANTAC [Concomitant]
     Indication: PRODUCT USED FOR UNKNOWN INDICATION
  15. CETIRIZINE [Concomitant]
     Indication: HYPERSENSITIVITY
  16. MULTIVITAMIN [Concomitant]
     Indication: PRODUCT USED FOR UNKNOWN INDICATION
  17. VITAMIN D3 [Concomitant]
     Indication: PRODUCT USED FOR UNKNOWN INDICATION
  18. VITAMIN B12 [Concomitant]
  19. FISH OIL [Concomitant]
  20. COQ10 [Concomitant]
     Indication: PRODUCT USED FOR UNKNOWN INDICATION
  21. VITAMIN C [Concomitant]
     Indication: PRODUCT USED FOR UNKNOWN INDICATION
  22. IMITREX [Concomitant]
     Indication: MIGRAINE
  23. FLU SHOT [Concomitant]
     Indication: PRODUCT USED FOR UNKNOWN INDICATION
     Dates: start: 201210, end: 201210
  24. ESTRADIOL [Concomitant]
     Indication: HOT FLUSH
  25. ESTRADIOL [Concomitant]
     Indication: MENOPAUSE
  26. PRO-AIR [Concomitant]
     Indication: HYPERSENSITIVITY
     Dates: start: 201301
  27. PRO-AIR [Concomitant]
     Indication: HYPERSENSITIVITY
  28. SYMBICORT [Concomitant]
     Indication: ASTHMA EXERCISE INDUCED
     Dates: start: 201301
  29. SYMBICORT [Concomitant]
     Indication: HYPERSENSITIVITY
  30. CHANTIX [Concomitant]
     Indication: SMOKING CESSATION THERAPY
     Dates: start: 20130325
  31. SPIRONLACTONE [Concomitant]
     Indication: PRODUCT USED FOR UNKNOWN INDICATION

REACTIONS (6)
  - Alopecia [Recovering/Resolving]
  - Injection site pain [Recovering/Resolving]
  - Myalgia [Recovering/Resolving]
  - Influenza [Recovering/Resolving]
  - Cough [Recovering/Resolving]
  - Fungal infection [Recovering/Resolving]
